FAERS Safety Report 9302700 (Version 1)
Quarter: 2013Q2

REPORT INFORMATION
  Report Type: Report from Study
  Country: US (occurrence: US)
  Receive Date: 20130522
  Receipt Date: 20130522
  Transmission Date: 20140414
  Serious: Yes (Other)
  Sender: FDA-Public Use
  Company Number: PHEH2012US008466

PATIENT
  Age: 24 Year
  Sex: Female

DRUGS (4)
  1. AFINITOR [Suspect]
     Indication: ASTROCYTOMA
     Dosage: 5.0 MG, UNK
     Route: 048
     Dates: start: 20120322
  2. AFINITOR [Suspect]
     Indication: ANGIOMYOLIPOMA
  3. TOPIRAMATE [Concomitant]
  4. VITAMIN D [Concomitant]

REACTIONS (11)
  - Convulsion [Recovering/Resolving]
  - Concomitant disease aggravated [Recovering/Resolving]
  - Acne cystic [Not Recovered/Not Resolved]
  - Weight increased [Not Recovered/Not Resolved]
  - Vaginal haemorrhage [Recovering/Resolving]
  - Blood cholesterol increased [Not Recovered/Not Resolved]
  - Blood triglycerides increased [Not Recovered/Not Resolved]
  - Low density lipoprotein increased [Not Recovered/Not Resolved]
  - High density lipoprotein increased [Not Recovered/Not Resolved]
  - Acne [Not Recovered/Not Resolved]
  - Wrong technique in drug usage process [Not Recovered/Not Resolved]
